FAERS Safety Report 23080671 (Version 1)
Quarter: 2023Q4

REPORT INFORMATION
  Report Type: Spontaneous
  Country: US (occurrence: None)
  Receive Date: 20231018
  Receipt Date: 20231018
  Transmission Date: 20240110
  Serious: No
  Sender: FDA-Public Use
  Company Number: None

PATIENT
  Age: 35 Year
  Sex: Female
  Weight: 81 kg

DRUGS (1)
  1. DAPSONE [Suspect]
     Active Substance: DAPSONE
     Dosage: FREQUENCY : DAILY;?
     Route: 048
     Dates: start: 20220712, end: 20220721

REACTIONS (8)
  - Angina pectoris [None]
  - Asthenia [None]
  - Cough [None]
  - Methaemoglobinaemia [None]
  - Respiratory depression [None]
  - Tachycardia [None]
  - Anaemia [None]
  - Occult blood positive [None]

NARRATIVE: CASE EVENT DATE: 20220720
